FAERS Safety Report 20595338 (Version 1)
Quarter: 2022Q1

REPORT INFORMATION
  Report Type: Report from Study
  Country: EG (occurrence: EG)
  Receive Date: 20220315
  Receipt Date: 20220315
  Transmission Date: 20220423
  Serious: Yes (Other)
  Sender: FDA-Public Use
  Company Number: EG-NOVARTISPH-NVSC2022EG055053

PATIENT
  Age: 40 Year
  Sex: Female

DRUGS (4)
  1. KISQALI [Suspect]
     Active Substance: RIBOCICLIB
     Indication: Breast cancer metastatic
     Dosage: 20 MG, 3 TABLETS AT ONCE FOR 21 DAYS THEN FREE WEEK
     Route: 048
     Dates: start: 20211111
  2. FEMARA [Concomitant]
     Active Substance: LETROZOLE
     Indication: Breast cancer metastatic
     Dosage: 1 DOSAGE FORM, QD
     Route: 065
     Dates: start: 202110
  3. ZOMETA [Concomitant]
     Active Substance: ZOLEDRONIC ACID
     Indication: Bone disorder
     Dosage: UNK (INJECTION EVERY 28 DAYS)
     Route: 042
     Dates: start: 202110
  4. ZOLADEX [Concomitant]
     Active Substance: GOSERELIN ACETATE
     Indication: Breast cancer metastatic
     Dosage: UNK (INJECTION EVERY 3 MONTHS)
     Route: 065
     Dates: start: 202110

REACTIONS (5)
  - Laboratory test abnormal [Unknown]
  - Leukopenia [Unknown]
  - Neutropenia [Unknown]
  - Peripheral swelling [Recovering/Resolving]
  - Abdominal pain upper [Not Recovered/Not Resolved]

NARRATIVE: CASE EVENT DATE: 20211111
